FAERS Safety Report 8954113 (Version 2)
Quarter: 2013Q3

REPORT INFORMATION
  Report Type: Report from Study
  Country: CA (occurrence: CA)
  Receive Date: 20121207
  Receipt Date: 20130806
  Transmission Date: 20140515
  Serious: Yes (Death, Hospitalization)
  Sender: FDA-Public Use
  Company Number: CA-JNJFOC-20121202042

PATIENT
  Age: 66 Year
  Sex: Male
  Weight: 61.69 kg

DRUGS (3)
  1. REMICADE [Suspect]
     Indication: PSORIASIS
     Route: 042
     Dates: end: 201205
  2. METHOTREXATE [Concomitant]
  3. ACITRETIN [Concomitant]

REACTIONS (1)
  - Lung neoplasm malignant [Fatal]
